FAERS Safety Report 14663795 (Version 1)
Quarter: 2018Q1

REPORT INFORMATION
  Report Type: Spontaneous
  Country: ES (occurrence: ES)
  Receive Date: 20180321
  Receipt Date: 20180321
  Transmission Date: 20180509
  Serious: Yes (Hospitalization)
  Sender: FDA-Public Use
  Company Number: ES-DSJP-DSE-2018-111084

PATIENT

DRUGS (6)
  1. PREGABALIN. [Concomitant]
     Active Substance: PREGABALIN
     Indication: PRODUCT USED FOR UNKNOWN INDICATION
     Dosage: 75 MG, ONCE EVERY 12HR
     Route: 048
  2. IXIA PLUS [Suspect]
     Active Substance: HYDROCHLOROTHIAZIDE\OLMESARTAN MEDOXOMIL
     Indication: ESSENTIAL HYPERTENSION
     Dosage: 40 MG /25 MG (40 MG /25 MG, 1 IN 1 D)
     Route: 048
     Dates: start: 2015, end: 20151111
  3. MOXON [Concomitant]
     Indication: PRODUCT USED FOR UNKNOWN INDICATION
     Dosage: 0.2 MG, ONCE EVERY 12HR
     Route: 048
  4. IBUPROFEN. [Interacting]
     Active Substance: IBUPROFEN
     Indication: PAIN
     Route: 048
     Dates: start: 201511, end: 20151111
  5. OMEPRAZOLE. [Concomitant]
     Active Substance: OMEPRAZOLE
     Indication: PRODUCT USED FOR UNKNOWN INDICATION
     Dosage: 20 MG, QD
     Route: 048
  6. ORFIDAL [Concomitant]
     Active Substance: LORAZEPAM
     Indication: PRODUCT USED FOR UNKNOWN INDICATION
     Dosage: 1 MG, QD
     Route: 048

REACTIONS (2)
  - Drug interaction [Recovered/Resolved]
  - Acute kidney injury [Recovered/Resolved]

NARRATIVE: CASE EVENT DATE: 201511
